FAERS Safety Report 6239582-6 (Version None)
Quarter: 2009Q2

REPORT INFORMATION
  Report Type: 
  Country: None (occurrence: None)
  Receive Date: 20090622
  Receipt Date: 20090611
  Transmission Date: 20091009
  Serious: Yes (Hospitalization)
  Sender: FDA-Public Use
  Company Number: US-BAXTER-2009BH009178

PATIENT
  Age: 45 Year
  Sex: Male

DRUGS (13)
  1. DIANEAL [Suspect]
     Indication: PERITONEAL DIALYSIS
     Route: 033
     Dates: start: 20090106, end: 20090524
  2. KLONOPIN [Concomitant]
     Indication: RESTLESS LEGS SYNDROME
     Route: 048
     Dates: start: 20081202
  3. LISINOPRIL [Concomitant]
     Indication: DRUG USE FOR UNKNOWN INDICATION
     Route: 048
     Dates: start: 20090206
  4. NEURONTIN [Concomitant]
     Indication: FEELING HOT
     Route: 048
     Dates: start: 20090218
  5. NEPHROCAPS [Concomitant]
     Indication: VITAMIN SUPPLEMENTATION
     Route: 048
     Dates: start: 20081202
  6. PHOSLO [Concomitant]
     Indication: DRUG USE FOR UNKNOWN INDICATION
     Route: 048
     Dates: start: 20081202
  7. RESTORIL [Concomitant]
     Indication: SLEEP DISORDER
     Route: 048
     Dates: start: 20081202
  8. SENSIPAR [Concomitant]
     Indication: HYPERPARATHYROIDISM
     Route: 048
     Dates: start: 20090515
  9. XANAX [Concomitant]
     Indication: SLEEP DISORDER
     Route: 048
     Dates: start: 20081202
  10. HEPARIN [Concomitant]
     Indication: RENAL FAILURE CHRONIC
     Route: 065
     Dates: start: 20081201, end: 20090529
  11. HEPARIN [Concomitant]
     Route: 065
     Dates: start: 20081201, end: 20090529
  12. IRON [Concomitant]
     Indication: DRUG USE FOR UNKNOWN INDICATION
     Route: 065
     Dates: start: 20090220
  13. ROCALTROL [Concomitant]
     Indication: DRUG USE FOR UNKNOWN INDICATION
     Route: 065
     Dates: start: 20090515

REACTIONS (3)
  - FUNGAL PERITONITIS [None]
  - PERITONEAL DIALYSIS COMPLICATION [None]
  - PERITONITIS BACTERIAL [None]
